FAERS Safety Report 23262195 (Version 1)
Quarter: 2023Q4

REPORT INFORMATION
  Report Type: Spontaneous
  Country: US (occurrence: None)
  Receive Date: 20231204
  Receipt Date: 20231204
  Transmission Date: 20240110
  Serious: Yes (Hospitalization)
  Sender: FDA-Public Use
  Company Number: None

PATIENT
  Age: 65 Year
  Sex: Male

DRUGS (2)
  1. BUMETANIDE [Suspect]
     Active Substance: BUMETANIDE
     Dosage: 4 MG TID PO
     Route: 048
     Dates: start: 20190612
  2. METOLAZONE [Suspect]
     Active Substance: METOLAZONE
     Dosage: 2.5MG EVERY DAY PO
     Route: 048
     Dates: start: 20231030

REACTIONS (2)
  - Hypokalaemia [None]
  - Hyponatraemia [None]

NARRATIVE: CASE EVENT DATE: 20231101
